FAERS Safety Report 25510628 (Version 1)
Quarter: 2025Q3

REPORT INFORMATION
  Report Type: Spontaneous
  Country: US (occurrence: None)
  Receive Date: 20250703
  Receipt Date: 20250703
  Transmission Date: 20251021
  Serious: Yes (Other)
  Sender: FDA-CTU
  Company Number: None

PATIENT
  Sex: Female
  Weight: 49.5 kg

DRUGS (4)
  1. NECON [Suspect]
     Active Substance: ETHINYL ESTRADIOL\NORETHINDRONE
     Indication: Contraception
     Route: 048
     Dates: start: 20250629, end: 20250702
  2. NORTREL [Suspect]
     Active Substance: ETHINYL ESTRADIOL\NORETHINDRONE
  3. SERTRALINE [Concomitant]
     Active Substance: SERTRALINE HYDROCHLORIDE
  4. SPRINOLACTANE [Concomitant]

REACTIONS (7)
  - Product dispensing error [None]
  - Product label issue [None]
  - Incorrect dose administered [None]
  - Intermenstrual bleeding [None]
  - Mood swings [None]
  - Fear of pregnancy [None]
  - Fatigue [None]
